FAERS Safety Report 10052842 (Version 1)
Quarter: 2014Q2

REPORT INFORMATION
  Report Type: Spontaneous
  Country: NL (occurrence: NL)
  Receive Date: 20140402
  Receipt Date: 20140402
  Transmission Date: 20141212
  Serious: Yes (Other)
  Sender: FDA-Public Use
  Company Number: NL-AMGEN-NLDSP2011070904

PATIENT
  Age: 75 Year
  Sex: Female

DRUGS (2)
  1. NEULASTA [Suspect]
     Indication: PROPHYLAXIS
     Dosage: 6 MG, 1X2W
     Route: 058
     Dates: start: 20101221
  2. ARANESP [Suspect]
     Indication: ANAEMIA
     Dosage: 500 MCG, 1X3W
     Route: 058

REACTIONS (2)
  - Embolism [Unknown]
  - Fluid intake reduced [Unknown]
